FAERS Safety Report 12697039 (Version 2)
Quarter: 2016Q3

REPORT INFORMATION
  Report Type: Spontaneous
  Country: CA (occurrence: CA)
  Receive Date: 20160830
  Receipt Date: 20160908
  Transmission Date: 20161109
  Serious: Yes (Other)
  Sender: FDA-Public Use
  Company Number: CA-ORION CORPORATION ORION PHARMA-TREX2016-1130

PATIENT
  Age: 62 Year
  Sex: Female

DRUGS (3)
  1. NITROGLYCERINE [Concomitant]
     Active Substance: NITROGLYCERIN
     Dosage: 2-3 TABLETS PER WEEK
  2. METHOTREXATE (TRADE NAME UNKNOWN) [Suspect]
     Active Substance: METHOTREXATE
     Indication: RHEUMATOID ARTHRITIS
     Route: 048
  3. METOPROLOL. [Concomitant]
     Active Substance: METOPROLOL
     Route: 065

REACTIONS (5)
  - Asthenia [Not Recovered/Not Resolved]
  - Infected skin ulcer [Recovered/Resolved]
  - Skin ulcer [Not Recovered/Not Resolved]
  - Somnolence [Not Recovered/Not Resolved]
  - Neuralgia [Not Recovered/Not Resolved]
